FAERS Safety Report 17351879 (Version 2)
Quarter: 2020Q3

REPORT INFORMATION
  Report Type: Spontaneous
  Country: US (occurrence: US)
  Receive Date: 20200130
  Receipt Date: 20200210
  Transmission Date: 20201105
  Serious: Yes (Other)
  Sender: FDA-Public Use
  Company Number: US-CELGENEUS-USA-20200109220

PATIENT
  Age: 78 Year
  Sex: Male

DRUGS (15)
  1. CANNABIDIOL [Concomitant]
     Active Substance: CANNABIDIOL
     Indication: COUGH
     Route: 065
     Dates: start: 2019
  2. ORIC?101. [Suspect]
     Active Substance: ORIC-101
     Route: 048
     Dates: start: 20200121
  3. MORPHINE SULFATE. [Concomitant]
     Active Substance: MORPHINE SULFATE
     Indication: MUSCULOSKELETAL CHEST PAIN
     Dosage: 15 MILLIGRAM
     Route: 065
     Dates: start: 20200107
  4. PROCHLORPERAZINE. [Concomitant]
     Active Substance: PROCHLORPERAZINE
     Indication: NAUSEA
     Dosage: 10 MILLIGRAM
     Route: 065
     Dates: start: 20200107
  5. MORPHINE SULFATE. [Concomitant]
     Active Substance: MORPHINE SULFATE
     Indication: BACK PAIN
  6. ABRAXANE [Suspect]
     Active Substance: PACLITAXEL
     Indication: NEUROENDOCRINE CARCINOMA METASTATIC
     Dosage: 138 MILLIGRAM
     Route: 041
     Dates: start: 20200106, end: 20200106
  7. MORPHINE SULPHATE [Concomitant]
     Active Substance: MORPHINE SULFATE
     Indication: COUGH
     Route: 065
     Dates: start: 20191129
  8. LISINOPRIL. [Concomitant]
     Active Substance: LISINOPRIL
     Indication: HYPERTENSION
     Dosage: 20 MILLIGRAM
     Route: 048
     Dates: start: 20190502
  9. LISINOPRIL. [Concomitant]
     Active Substance: LISINOPRIL
     Dosage: 10 MILLIGRAM
     Route: 048
     Dates: start: 202001
  10. PROCHLORPERAZINE. [Concomitant]
     Active Substance: PROCHLORPERAZINE
     Indication: VOMITING
  11. DOCUSATE [Concomitant]
     Active Substance: DOCUSATE
     Indication: PROPHYLAXIS
     Dosage: 250 MILLIGRAM
     Route: 065
     Dates: start: 20200110
  12. ORIC?101. [Suspect]
     Active Substance: ORIC-101
     Indication: NEUROENDOCRINE CARCINOMA METASTATIC
     Dosage: 160 MILLIGRAM
     Route: 048
     Dates: start: 20200106, end: 20200110
  13. LOVASTATIN. [Concomitant]
     Active Substance: LOVASTATIN
     Indication: HYPERLIPIDAEMIA
     Dosage: 40 MILLIGRAM
     Route: 065
     Dates: start: 1999
  14. ALBUTEROL. [Concomitant]
     Active Substance: ALBUTEROL
     Indication: COUGH
     Dosage: 90 MICROGRAM
     Route: 065
     Dates: start: 20190118
  15. ABRAXANE [Suspect]
     Active Substance: PACLITAXEL
     Route: 041
     Dates: start: 20200121

REACTIONS (1)
  - Atrial fibrillation [Recovered/Resolved]

NARRATIVE: CASE EVENT DATE: 20200113
